FAERS Safety Report 9186278 (Version 3)
Quarter: 2013Q2

REPORT INFORMATION
  Report Type: Report from Study
  Country: US (occurrence: US)
  Receive Date: 20130325
  Receipt Date: 20130423
  Transmission Date: 20140414
  Serious: Yes (Hospitalization)
  Sender: FDA-Public Use
  Company Number: US-GLAXOSMITHKLINE-B0876177A

PATIENT
  Age: 52 Year
  Sex: Male
  Weight: 78.9 kg

DRUGS (2)
  1. BUPROPION HCL [Suspect]
     Indication: EX-TOBACCO USER
     Dosage: 150MG IN THE MORNING
     Route: 048
     Dates: start: 20120703, end: 20120924
  2. ADVIL [Concomitant]
     Dates: start: 20070101

REACTIONS (1)
  - Coronary artery occlusion [Recovered/Resolved]
